FAERS Safety Report 22198818 (Version 1)
Quarter: 2023Q2

REPORT INFORMATION
  Report Type: Spontaneous
  Country: US (occurrence: US)
  Receive Date: 20230411
  Receipt Date: 20230411
  Transmission Date: 20230721
  Serious: Yes (Other)
  Sender: FDA-Public Use
  Company Number: US-009507513-2304MEX001591

PATIENT
  Age: 64 Year
  Sex: Female

DRUGS (1)
  1. KEYTRUDA [Suspect]
     Active Substance: PEMBROLIZUMAB
     Indication: Bladder transitional cell carcinoma stage IV
     Dosage: 400 MILLIGRAM, EVERY 6 WEEKS

REACTIONS (4)
  - Immune-mediated thyroiditis [Unknown]
  - Immune-mediated enterocolitis [Unknown]
  - Chronic pigmented purpura [Recovered/Resolved]
  - Product use issue [Unknown]
